FAERS Safety Report 4951618-9 (Version None)
Quarter: 2006Q1

REPORT INFORMATION
  Report Type: 
  Country: None (occurrence: None)
  Receive Date: 20060320
  Receipt Date: 20060314
  Transmission Date: 20060701
  Serious: Yes (Other)
  Sender: FDA-Public Use
  Company Number: GBWYE474115MAR06

PATIENT
  Age: 57 Year
  Sex: Female

DRUGS (2)
  1. IBUPROFEN [Suspect]
     Indication: PYREXIA
     Dosage: 10 ML 3X PER 1 DAY
     Route: 048
     Dates: start: 20060213, end: 20060214
  2. LOPERAMIDE [Concomitant]

REACTIONS (3)
  - ABNORMAL DREAMS [None]
  - DELUSION [None]
  - ILLUSION [None]
